FAERS Safety Report 24692221 (Version 2)
Quarter: 2025Q3

REPORT INFORMATION
  Report Type: Spontaneous
  Country: EU (occurrence: EU)
  Receive Date: 20241203
  Receipt Date: 20250809
  Transmission Date: 20251021
  Serious: Yes (Other)
  Sender: ALEXION PHARMACEUTICALS
  Company Number: EU-AstraZeneca-CH-00755067AM

PATIENT
  Age: 74 Year
  Sex: Female

DRUGS (3)
  1. BEVESPI AEROSPHERE [Suspect]
     Active Substance: FORMOTEROL FUMARATE\GLYCOPYRROLATE
     Indication: Chronic obstructive pulmonary disease
     Dosage: 7.2 MICROGRAM, 4 TIMES DAILY
     Dates: start: 202411
  2. ALBUTEROL SULFATE [Concomitant]
     Active Substance: ALBUTEROL SULFATE
  3. ALBUTEROL SULFATE [Concomitant]
     Active Substance: ALBUTEROL SULFATE

REACTIONS (10)
  - Diabetes mellitus [Unknown]
  - Hypothyroidism [Unknown]
  - Dyspnoea [Unknown]
  - Chest discomfort [Unknown]
  - Vertigo [Unknown]
  - Device use issue [Unknown]
  - Cough [Unknown]
  - Secretion discharge [Unknown]
  - Fear [Unknown]
  - Speech disorder [Unknown]
